FAERS Safety Report 7568415-0 (Version None)
Quarter: 2011Q2

REPORT INFORMATION
  Report Type: 
  Country: None (occurrence: None)
  Receive Date: 20110623
  Receipt Date: 20110609
  Transmission Date: 20111010
  Serious: Yes (Other)
  Sender: FDA-Public Use
  Company Number: CA-ROCHE-782365

PATIENT
  Sex: Male

DRUGS (1)
  1. LARIAM [Suspect]
     Indication: MALARIA PROPHYLAXIS
     Route: 048
     Dates: start: 20050601, end: 20060401

REACTIONS (6)
  - PARANOIA [None]
  - DEPRESSION [None]
  - SUICIDAL IDEATION [None]
  - PHYSICAL ASSAULT [None]
  - AGGRESSION [None]
  - PSYCHOTIC BEHAVIOUR [None]
